FAERS Safety Report 4483530-6 (Version None)
Quarter: 2004Q4

REPORT INFORMATION
  Report Type: 
  Country: None (occurrence: None)
  Receive Date: 20041020
  Receipt Date: 20041020
  Transmission Date: 20050328
  Serious: Yes (Other)
  Sender: FDA-Public Use
  Company Number: None

PATIENT
  Sex: Female
  Weight: 94.8018 kg

DRUGS (1)
  1. SPIRIVA [Suspect]
     Indication: CHRONIC OBSTRUCTIVE AIRWAYS DISEASE
     Dosage: 18 MCG INITIALED ORAL
     Route: 048
     Dates: start: 20041010, end: 20041018

REACTIONS (5)
  - ABNORMAL SENSATION IN EYE [None]
  - BACK PAIN [None]
  - DYSPNOEA [None]
  - PAIN IN EXTREMITY [None]
  - SENSATION OF PRESSURE [None]
